FAERS Safety Report 9632287 (Version 1)
Quarter: 2013Q4

REPORT INFORMATION
  Report Type: Spontaneous
  Country: CA (occurrence: CA)
  Receive Date: 20131018
  Receipt Date: 20131018
  Transmission Date: 20140711
  Serious: Yes (Death)
  Sender: FDA-Public Use
  Company Number: CA-PFIZER INC-2013289094

PATIENT
  Sex: Male

DRUGS (1)
  1. DETROL LA [Suspect]

REACTIONS (1)
  - Death [Fatal]
